FAERS Safety Report 12144597 (Version 1)
Quarter: 2016Q1

REPORT INFORMATION
  Report Type: Spontaneous
  Country: US (occurrence: None)
  Receive Date: 20160303
  Receipt Date: 20160303
  Transmission Date: 20160526
  Serious: Yes (Other)
  Sender: FDA-Public Use
  Company Number: None

PATIENT
  Age: 46 Year
  Sex: Female
  Weight: 72.58 kg

DRUGS (6)
  1. VITAMINS [Concomitant]
     Active Substance: VITAMINS
  2. B COMP [Concomitant]
  3. D [Concomitant]
  4. PROZAC [Concomitant]
     Active Substance: FLUOXETINE HYDROCHLORIDE
  5. TRINTELLIX [Suspect]
     Active Substance: VORTIOXETINE HYDROBROMIDE
     Indication: DEPRESSION
     Dosage: Q PIL ONCE DAILY TAKEN BY MOUTH
     Route: 048
     Dates: start: 20160225, end: 20160229
  6. MULTI VITAMINS [Concomitant]

REACTIONS (17)
  - Illogical thinking [None]
  - Diarrhoea [None]
  - Panic attack [None]
  - Sensory disturbance [None]
  - Parosmia [None]
  - Nausea [None]
  - Nightmare [None]
  - Disturbance in attention [None]
  - Poor quality sleep [None]
  - Palpitations [None]
  - Decreased appetite [None]
  - Hyperhidrosis [None]
  - Initial insomnia [None]
  - Hallucination [None]
  - Muscle twitching [None]
  - Headache [None]
  - Impaired work ability [None]

NARRATIVE: CASE EVENT DATE: 20160229
